FAERS Safety Report 5008577-2 (Version None)
Quarter: 2006Q2

REPORT INFORMATION
  Report Type: 
  Country: None (occurrence: None)
  Receive Date: 20060522
  Receipt Date: 20060522
  Transmission Date: 20061013
  Serious: Yes (Hospitalization)
  Sender: FDA-Public Use
  Company Number: None

PATIENT
  Age: 44 Year
  Sex: Male
  Weight: 78 kg

DRUGS (4)
  1. ONTAK [Suspect]
     Indication: T-CELL LYMPHOMA
     Dosage: 18 MCG/KG DAYS 1+2 EA CYCLE IV DRIP
     Route: 041
     Dates: start: 20060425, end: 20060426
  2. CYCLOPHOSPHAMIDE [Suspect]
     Indication: T-CELL LYMPHOMA
     Dosage: DAYS 3 EA CYCLE IV DRIP
     Route: 041
     Dates: start: 20060427, end: 20060427
  3. DOXORUBICIN-VIN 1.4 MG/M2 [Suspect]
     Indication: T-CELL LYMPHOMA
  4. VINCRISTINE [Suspect]

REACTIONS (1)
  - PYREXIA [None]
